FAERS Safety Report 12393301 (Version 1)
Quarter: 2016Q2

REPORT INFORMATION
  Report Type: Spontaneous
  Country: US (occurrence: None)
  Receive Date: 20160520
  Receipt Date: 20160520
  Transmission Date: 20160815
  Serious: Yes (Hospitalization)
  Sender: FDA-Public Use
  Company Number: None

PATIENT
  Age: 61 Year
  Sex: Female

DRUGS (1)
  1. HUMIRA [Suspect]
     Active Substance: ADALIMUMAB
     Indication: RHEUMATOID ARTHRITIS
     Dosage: 40 MG (1 PEN) EVERY OTHER WEEK SUBCUTANEOUS INJECTION
     Route: 058
     Dates: start: 20160311

REACTIONS (2)
  - Hot flush [None]
  - Hyperhidrosis [None]

NARRATIVE: CASE EVENT DATE: 20160425
